FAERS Safety Report 9269898 (Version 3)
Quarter: 2013Q4

REPORT INFORMATION
  Report Type: Spontaneous
  Country: US (occurrence: US)
  Receive Date: 20130503
  Receipt Date: 20131003
  Transmission Date: 20140711
  Serious: Yes (Hospitalization)
  Sender: FDA-Public Use
  Company Number: US-B.I. PHARMACEUTICALS,INC./RIDGEFIELD-2013-BI-12219BP

PATIENT
  Age: 76 Year
  Sex: Female
  Weight: 81.65 kg

DRUGS (16)
  1. PRADAXA [Suspect]
     Indication: ANTICOAGULANT THERAPY
     Dosage: 300 MG
     Route: 048
     Dates: start: 20110414, end: 20110525
  2. PRADAXA [Suspect]
     Indication: ATRIAL FIBRILLATION
  3. ACTOS [Concomitant]
     Dosage: 30 MG
     Dates: start: 2006, end: 2012
  4. DIOVAN [Concomitant]
     Dates: start: 2006, end: 2012
  5. DOXAZOSIN [Concomitant]
     Dosage: 2 MG
     Dates: start: 2010, end: 2012
  6. GLIMEPIRIDE [Concomitant]
     Dosage: 2 MG
     Dates: start: 2009, end: 2012
  7. GLYBURIDE-METFORMIN [Concomitant]
     Dates: start: 2006, end: 2012
  8. LANTUS INSULIN [Concomitant]
     Dates: start: 1990
  9. NEXIUM [Concomitant]
     Dates: start: 2010, end: 2012
  10. FEXOFENADINE [Concomitant]
     Dosage: 180 MG
  11. HYOSCYAMINE [Concomitant]
     Dosage: 0.125 MG
  12. LEVOTHROID [Concomitant]
     Dosage: 112 MCG
  13. LOPRESSOR [Concomitant]
     Dosage: 100 MG
  14. LYRICA [Concomitant]
     Dosage: 75 MG
  15. MECLIZINE [Concomitant]
     Dosage: 75 MG
  16. OXYCODONE [Concomitant]

REACTIONS (3)
  - Subdural haematoma [Unknown]
  - Haemorrhagic stroke [Unknown]
  - Cerebral haemorrhage [Unknown]
